FAERS Safety Report 4763496-1 (Version None)
Quarter: 2005Q3

REPORT INFORMATION
  Report Type: 
  Country: None (occurrence: None)
  Receive Date: 20050908
  Receipt Date: 20050824
  Transmission Date: 20060218
  Serious: Yes (Other)
  Sender: FDA-Public Use
  Company Number: TH-BOEHRINGER INGELHEIM PHARMACEUTICALS, INC.-2005-DE-03392GD

PATIENT

DRUGS (1)
  1. TRIOMUNE [Suspect]
     Indication: HIV INFECTION

REACTIONS (2)
  - CONVULSION [None]
  - HYPONATRAEMIA [None]
